FAERS Safety Report 18183020 (Version 1)
Quarter: 2020Q3

REPORT INFORMATION
  Report Type: Spontaneous
  Country: US (occurrence: US)
  Receive Date: 20200821
  Receipt Date: 20200821
  Transmission Date: 20201103
  Serious: Yes (Other)
  Sender: FDA-Public Use
  Company Number: NVSC2020US231096

PATIENT
  Age: 68 Year
  Sex: Male

DRUGS (4)
  1. PACLITAXEL. [Suspect]
     Active Substance: PACLITAXEL
     Indication: METASTATIC SALIVARY GLAND CANCER
     Dosage: 200 MG/M2, 21 DAYS CYCLES
     Route: 065
  2. CARBOPLATIN. [Suspect]
     Active Substance: CARBOPLATIN
     Indication: METASTATIC SALIVARY GLAND CANCER
     Dosage: UNK, AUC 4
     Route: 065
  3. LEUPRORELIN [Suspect]
     Active Substance: LEUPROLIDE ACETATE
     Indication: METASTATIC SALIVARY GLAND CANCER
     Dosage: 45 MG, EVERY 6 MONTHS
     Route: 058
  4. BICALUTAMIDE. [Suspect]
     Active Substance: BICALUTAMIDE
     Indication: METASTATIC SALIVARY GLAND CANCER
     Dosage: 50 MG, QD
     Route: 065

REACTIONS (10)
  - Headache [Unknown]
  - Vision blurred [Unknown]
  - Metastases to eye [Unknown]
  - Fatigue [Unknown]
  - Diplopia [Unknown]
  - Therapy partial responder [Unknown]
  - Metastatic salivary gland cancer [Unknown]
  - Product use in unapproved indication [Unknown]
  - Malignant neoplasm progression [Unknown]
  - Metastases to central nervous system [Unknown]
